FAERS Safety Report 5621099-0 (Version None)
Quarter: 2008Q1

REPORT INFORMATION
  Report Type: 
  Country: None (occurrence: None)
  Receive Date: 20080114
  Receipt Date: 20070108
  Transmission Date: 20080703
  Serious: Yes (Hospitalization, Disabling)
  Sender: FDA-Public Use
  Company Number: A03200700216

PATIENT
  Age: 81 Year
  Sex: Female
  Weight: 67.586 kg

DRUGS (4)
  1. PLAVIX [Suspect]
     Indication: ANTICOAGULANT THERAPY
     Dosage: 75 MG QD-ORAL
     Route: 048
     Dates: start: 20061119, end: 20061123
  2. PLAVIX [Suspect]
     Indication: CEREBROVASCULAR ACCIDENT
     Dosage: 75 MG QD-ORAL
     Route: 048
     Dates: start: 20061119, end: 20061123
  3. ASPIRIN [Suspect]
     Indication: ANTICOAGULANT THERAPY
     Dosage: 81 MG QD-ORAL
     Route: 048
     Dates: start: 20061119, end: 20061123
  4. ASPIRIN [Suspect]
     Indication: ANTICOAGULANT THERAPY
     Dosage: 325 MG QD-ORAL
     Route: 048
     Dates: end: 20061118

REACTIONS (6)
  - BRAIN OEDEMA [None]
  - CONVULSION [None]
  - DYSARTHRIA [None]
  - DYSPHAGIA [None]
  - HAEMORRHAGIC STROKE [None]
  - HEMIPARESIS [None]
